FAERS Safety Report 14893884 (Version 2)
Quarter: 2019Q3

REPORT INFORMATION
  Report Type: Report from Study
  Country: US (occurrence: US)
  Receive Date: 20180514
  Receipt Date: 20190827
  Transmission Date: 20191004
  Serious: Yes (Hospitalization, Other)
  Sender: FDA-Public Use
  Company Number: US-ACTELION-A-NJ2018-171742

PATIENT
  Age: 50 Year
  Sex: Female

DRUGS (1)
  1. OPSUMIT [Suspect]
     Active Substance: MACITENTAN
     Indication: PULMONARY ARTERIAL HYPERTENSION
     Dosage: 10 MG, QD
     Route: 048
     Dates: start: 20180314

REACTIONS (5)
  - Upper gastrointestinal haemorrhage [Recovering/Resolving]
  - Thyroid operation [Unknown]
  - Gastrointestinal ulcer perforation [Recovering/Resolving]
  - Weight increased [Not Recovered/Not Resolved]
  - General physical condition decreased [Not Recovered/Not Resolved]

NARRATIVE: CASE EVENT DATE: 20180329
